FAERS Safety Report 9721757 (Version 1)
Quarter: 2013Q4

REPORT INFORMATION
  Report Type: Report from Study
  Country: US (occurrence: US)
  Receive Date: 20131201
  Receipt Date: 20131201
  Transmission Date: 20140711
  Serious: No
  Sender: FDA-Public Use
  Company Number: US-ABBVIE-13P-163-1158754-00

PATIENT
  Age: 48 Year
  Sex: Male
  Weight: 102.15 kg

DRUGS (4)
  1. ANDROGEL [Suspect]
     Indication: BLOOD TESTOSTERONE DECREASED
     Route: 061
     Dates: start: 20131008
  2. ATENOLOL [Concomitant]
     Indication: HYPERTENSION
  3. LEVOTHYROXINE [Concomitant]
     Indication: HYPOTHYROIDISM
  4. ALLOPURINOL [Concomitant]
     Indication: GOUT

REACTIONS (1)
  - Insomnia [Not Recovered/Not Resolved]
